FAERS Safety Report 7878988-6 (Version None)
Quarter: 2011Q4

REPORT INFORMATION
  Report Type: 
  Country: None (occurrence: None)
  Receive Date: 20111101
  Receipt Date: 20111021
  Transmission Date: 20120403
  Serious: Yes (Hospitalization, Other)
  Sender: FDA-Public Use
  Company Number: PHHY2011BR93761

PATIENT
  Sex: Female

DRUGS (14)
  1. SEROQUEL [Concomitant]
     Dosage: 25 MG, UNK
  2. CALCIUM [Concomitant]
  3. LEVOTHYROXINE SODIUM [Concomitant]
     Dosage: 75 MG, UNK
  4. SIMVASTATIN [Concomitant]
  5. METOPROLOL SUCCINATE [Concomitant]
     Dosage: 25 MG, UNK
  6. PROLOPA [Concomitant]
  7. CALCIUM PHOSPHATE [Concomitant]
  8. COLECALCIFEROL [Concomitant]
  9. LACTULON [Concomitant]
     Dosage: 667 MG, UNK
  10. LOSARTAN POTASSIUM [Concomitant]
     Dosage: 50 MG, UNK
  11. VITAMIN B NOS [Concomitant]
  12. CLOPIDOGREL [Concomitant]
  13. MELOXICAM  15 [Concomitant]
  14. EXELON [Suspect]
     Indication: PARKINSON'S DISEASE
     Dosage: 2 DF,QD
     Dates: start: 20110401

REACTIONS (5)
  - TOOTH FRACTURE [None]
  - JOINT DISLOCATION [None]
  - TRAUMATIC LUNG INJURY [None]
  - FALL [None]
  - RIB FRACTURE [None]
